FAERS Safety Report 24328556 (Version 1)
Quarter: 2024Q3

REPORT INFORMATION
  Report Type: Spontaneous
  Country: US (occurrence: None)
  Receive Date: 20240917
  Receipt Date: 20240917
  Transmission Date: 20241017
  Serious: Yes (Hospitalization)
  Sender: Public
  Company Number: None

PATIENT
  Age: 31 Year
  Sex: Male
  Weight: 79.5 kg

DRUGS (2)
  1. CEFAZOLIN [Suspect]
     Active Substance: CEFAZOLIN
     Indication: Skin infection
     Dosage: OTHER FREQUENCY : CONTINUOUS;?
     Route: 041
     Dates: start: 20240911, end: 20240914
  2. CEFAZOLIN [Suspect]
     Active Substance: CEFAZOLIN
     Indication: Soft tissue infection

REACTIONS (1)
  - Serum sickness-like reaction [None]

NARRATIVE: CASE EVENT DATE: 20240913
